FAERS Safety Report 9870351 (Version 1)
Quarter: 2014Q1

REPORT INFORMATION
  Report Type: Spontaneous
  Country: US (occurrence: None)
  Receive Date: 20140131
  Receipt Date: 20140131
  Transmission Date: 20141002
  Serious: Yes (Death)
  Sender: FDA-Public Use
  Company Number: 2014AP000529

PATIENT
  Age: 18 Year
  Sex: Female

DRUGS (3)
  1. DILT-XR [Suspect]
  2. POTASSIUM CHLORIDE [Suspect]
  3. METHAMPHETAMINE [Suspect]

REACTIONS (1)
  - Completed suicide [None]
